FAERS Safety Report 12815511 (Version 7)
Quarter: 2017Q4

REPORT INFORMATION
  Report Type: Report from Study
  Country: US (occurrence: US)
  Receive Date: 20161005
  Receipt Date: 20171116
  Transmission Date: 20180320
  Serious: Yes (Death, Hospitalization)
  Sender: FDA-Public Use
  Company Number: US-EISAI MEDICAL RESEARCH-EC-2016-020925

PATIENT
  Age: 53 Year
  Sex: Male
  Weight: 92 kg

DRUGS (8)
  1. IMDUR [Concomitant]
     Active Substance: ISOSORBIDE MONONITRATE
  2. LENVATINIB [Suspect]
     Active Substance: LENVATINIB
     Indication: OESOPHAGEAL ADENOCARCINOMA
     Route: 048
     Dates: start: 20160929, end: 20161027
  3. LENVATINIB [Suspect]
     Active Substance: LENVATINIB
     Route: 048
     Dates: start: 20161109, end: 20161115
  4. STOOL SOFTENER OTC [Concomitant]
  5. COZAAR [Concomitant]
     Active Substance: LOSARTAN POTASSIUM
  6. MS CONTIN IR/ MORPHINE ER [Concomitant]
  7. MIDAZOLAM [Concomitant]
     Active Substance: MIDAZOLAM HYDROCHLORIDE
     Route: 048
     Dates: start: 20160926, end: 20160929
  8. COREG [Concomitant]
     Active Substance: CARVEDILOL

REACTIONS (2)
  - Abdominal pain upper [Not Recovered/Not Resolved]
  - Malignant neoplasm progression [Fatal]

NARRATIVE: CASE EVENT DATE: 20161001
